FAERS Safety Report 9373580 (Version 1)
Quarter: 2013Q2

REPORT INFORMATION
  Report Type: Spontaneous
  Country: DE (occurrence: DE)
  Receive Date: 20130627
  Receipt Date: 20130627
  Transmission Date: 20140414
  Serious: Yes (Other)
  Sender: FDA-Public Use
  Company Number: GXKR2013DE002212

PATIENT
  Sex: 0

DRUGS (2)
  1. MIRTAZAPINE [Suspect]
     Indication: DEPRESSION
     Dosage: 30 MG, QHS
     Route: 011
     Dates: start: 20121212, end: 20130426
  2. ORFIRIL [Suspect]
     Indication: MOOD ALTERED
     Dosage: 6-6-7-7 ML
     Dates: start: 20130402, end: 20130426

REACTIONS (3)
  - Prothrombin time prolonged [Not Recovered/Not Resolved]
  - Leukopenia [Not Recovered/Not Resolved]
  - Thrombocytopenia [Not Recovered/Not Resolved]
